FAERS Safety Report 6583515-X (Version None)
Quarter: 2010Q1

REPORT INFORMATION
  Report Type: 
  Country: None (occurrence: None)
  Receive Date: 20100216
  Receipt Date: 20100204
  Transmission Date: 20100710
  Serious: Yes (Other)
  Sender: FDA-Public Use
  Company Number: PHHY2009JP12452

PATIENT
  Sex: Female

DRUGS (14)
  1. AMN107 AMN+CAP [Suspect]
     Indication: CHRONIC MYELOID LEUKAEMIA
     Dosage: 200 MG DAILY
     Route: 048
     Dates: start: 20090220, end: 20090305
  2. AMN107 AMN+CAP [Suspect]
     Dosage: 400 MG DAILY
     Route: 048
     Dates: start: 20090306, end: 20090311
  3. AMN107 AMN+CAP [Suspect]
     Dosage: 200 MG DAILY
     Route: 048
     Dates: start: 20090312, end: 20090507
  4. AMN107 AMN+CAP [Suspect]
     Dosage: 100 MG DAILY
     Route: 048
     Dates: start: 20090508, end: 20090722
  5. AMN107 AMN+CAP [Suspect]
     Dosage: 200 MG/DAY
     Route: 048
     Dates: start: 20090723
  6. BLOOD TRANSFUSION, AUXILIARY PRODUCTS [Concomitant]
  7. CRAVIT [Concomitant]
     Dosage: UNK
     Route: 048
     Dates: start: 20090220, end: 20090402
  8. MYSLEE [Concomitant]
     Dosage: UNK
     Dates: start: 20090220, end: 20090402
  9. DIFLUCAN [Concomitant]
     Dosage: UNK
     Route: 048
     Dates: start: 20090220, end: 20090326
  10. LUPRAC [Concomitant]
     Dosage: UNK
     Route: 048
     Dates: start: 20090220, end: 20090318
  11. ALDACTONE [Concomitant]
     Dosage: UNK
     Route: 048
     Dates: start: 20090220, end: 20090318
  12. BROTIZOLAM [Concomitant]
     Dosage: 0.25 MG, UNK
     Route: 048
     Dates: start: 20090403
  13. RED BLOOD CELLS [Concomitant]
     Dosage: 2 U, UNK
     Dates: start: 20090610
  14. PLATELETS [Concomitant]
     Dosage: 10 U, UNK
     Dates: start: 20090610

REACTIONS (9)
  - ANAEMIA [None]
  - BLOOD BILIRUBIN INCREASED [None]
  - MALAISE [None]
  - MONOCYTE PERCENTAGE INCREASED [None]
  - PLATELET COUNT DECREASED [None]
  - PRURITUS [None]
  - PURPURA [None]
  - RASH [None]
  - RASH PRURITIC [None]
